FAERS Safety Report 14626707 (Version 1)
Quarter: 2018Q1

REPORT INFORMATION
  Report Type: Spontaneous
  Country: US (occurrence: US)
  Receive Date: 20180312
  Receipt Date: 20180312
  Transmission Date: 20180509
  Serious: Yes (Hospitalization)
  Sender: FDA-Public Use
  Company Number: US-ELI_LILLY_AND_COMPANY-US201803000308

PATIENT
  Age: 42 Year
  Sex: Male

DRUGS (2)
  1. HUMALOG [Suspect]
     Active Substance: INSULIN LISPRO
     Indication: DIABETES MELLITUS
     Dosage: UNK UNK, PRN
  2. HUMALOG [Suspect]
     Active Substance: INSULIN LISPRO
     Dosage: 0.8 U, PRN

REACTIONS (9)
  - Stress [Unknown]
  - Heart rate increased [Recovered/Resolved]
  - Blood pressure increased [Recovering/Resolving]
  - Dehydration [Recovering/Resolving]
  - Blood ketone body [Unknown]
  - Injection site bruising [Unknown]
  - Eating disorder [Unknown]
  - Blood glucose increased [Recovered/Resolved]
  - Glycosylated haemoglobin increased [Recovered/Resolved]
